FAERS Safety Report 6255623-4 (Version None)
Quarter: 2009Q3

REPORT INFORMATION
  Report Type: 
  Country: None (occurrence: None)
  Receive Date: 20090702
  Receipt Date: 20090624
  Transmission Date: 20100115
  Serious: Yes (Other)
  Sender: FDA-Public Use
  Company Number: GB-BAUSCH-2009BL003132

PATIENT
  Age: 8 Year
  Sex: Male
  Weight: 37 kg

DRUGS (11)
  1. PHENYLEPHRINE [Suspect]
     Indication: RETINAL OPERATION
     Route: 047
  2. SEVOFLURANE [Concomitant]
     Indication: ANAESTHESIA
     Route: 049
  3. PROPOFOL [Concomitant]
     Indication: ANAESTHESIA
     Route: 042
  4. VECURONIUM BROMIDE [Concomitant]
     Indication: ANAESTHESIA
     Route: 042
  5. ALFENTANIL [Concomitant]
     Indication: ANAESTHESIA
     Route: 042
  6. MORPHINE [Concomitant]
     Indication: ANAESTHESIA
     Route: 042
  7. ONDASETRON [Concomitant]
     Indication: ANAESTHESIA
     Route: 042
  8. DICLOFENAC [Concomitant]
     Indication: ANAESTHESIA
     Route: 054
  9. PARACETAMOL [Concomitant]
     Indication: ANAESTHESIA
     Route: 054
  10. NITROUS OXIDE [Concomitant]
     Indication: ANAESTHESIA
     Route: 049
  11. ISOFLURANE [Concomitant]
     Indication: ANAESTHESIA
     Route: 049

REACTIONS (2)
  - PROCEDURAL COMPLICATION [None]
  - PULMONARY OEDEMA [None]
